FAERS Safety Report 7595228-6 (Version None)
Quarter: 2011Q3

REPORT INFORMATION
  Report Type: 
  Country: None (occurrence: None)
  Receive Date: 20110707
  Receipt Date: 20110629
  Transmission Date: 20111222
  Serious: Yes (Other)
  Sender: FDA-Public Use
  Company Number: DE-NOVOPROD-324075

PATIENT
  Sex: Female
  Weight: 60 kg

DRUGS (3)
  1. DICLOFENAC SODIUM [Concomitant]
     Dosage: UNK
     Dates: start: 20110107, end: 20110214
  2. VICTOZA [Suspect]
     Indication: OBESITY
     Dosage: 0.6 MG, QD
     Route: 058
     Dates: start: 20110123, end: 20110214
  3. MICROFINE NEEDLES [Concomitant]

REACTIONS (4)
  - URTICARIA [None]
  - INJECTION SITE PAIN [None]
  - BACK PAIN [None]
  - JOINT SWELLING [None]
